FAERS Safety Report 10896603 (Version 2)
Quarter: 2015Q1

REPORT INFORMATION
  Report Type: Spontaneous
  Country: IT (occurrence: None)
  Receive Date: 20150302
  Receipt Date: 20150316
  Transmission Date: 20150721
  Serious: Yes (Other)
  Sender: FDA-Public Use
  Company Number: NL01PV15_38560

PATIENT
  Age: 87 Year
  Sex: Male

DRUGS (11)
  1. ZOLPIDEM [Suspect]
     Active Substance: ZOLPIDEM\ZOLPIDEM TARTRATE
     Indication: PRODUCT USED FOR UNKNOWN INDICATION
     Route: 048
     Dates: start: 20141121, end: 20141129
  2. FOLINA /00024201/ (FOLIC ACID) [Concomitant]
  3. LANSOX (LANSOPRAZOLE) [Concomitant]
     Active Substance: LANSOPRAZOLE
  4. ZYLORIC (ALLOPURINOL) [Concomitant]
     Active Substance: ALLOPURINOL
  5. DOBETIN /00056201/ (CYANOCOBALAMIN) [Concomitant]
  6. SERENASE [Suspect]
     Active Substance: HALOPERIDOL
     Indication: PRODUCT USED FOR UNKNOWN INDICATION
     Dosage: 24 GTT DAILY, ORAL DROPS, SOLUTION, ORAL
     Route: 048
     Dates: start: 20141121, end: 20141129
  7. CARDICOR (BISOPROLOL FUMARATE [Concomitant]
  8. MEDROL / 00049601/ (METHYLPREDNISOLONE) [Concomitant]
  9. LASIX /00032601 (FUROSEMIDE) [Concomitant]
  10. TRITTICO (TRAZODONE HYDROCHLORIDE) ORAL DROPS. SOLUTION [Suspect]
     Active Substance: TRAZODONE HYDROCHLORIDE
     Indication: PRODUCT USED FOR UNKNOWN INDICATION
     Dosage: 15 GTT DAILY, 15 GTT DAILY, ORAL DROPS, SOLUTION, ORAL
     Route: 048
     Dates: start: 20141121, end: 20141129
  11. SEROQUEL [Concomitant]
     Active Substance: QUETIAPINE FUMARATE

REACTIONS (5)
  - Intentional overdose [None]
  - Toxicity to various agents [None]
  - Depressed level of consciousness [None]
  - Sopor [None]
  - Miosis [None]

NARRATIVE: CASE EVENT DATE: 20141129
